FAERS Safety Report 4547876-5 (Version None)
Quarter: 2004Q4

REPORT INFORMATION
  Report Type: 
  Country: None (occurrence: None)
  Receive Date: 20041227
  Receipt Date: 20041020
  Transmission Date: 20050328
  Serious: No
  Sender: FDA-Public Use
  Company Number: 04P-163-0277975-00

PATIENT
  Age: 52 Year
  Sex: Female
  Weight: 56.246 kg

DRUGS (1)
  1. HUMIRA [Suspect]
     Dosage: 40 MG, SUBCUTANEOUS
     Route: 058
     Dates: start: 20031019

REACTIONS (1)
  - INJECTION SITE HAEMORRHAGE [None]
